FAERS Safety Report 10059476 (Version 2)
Quarter: 2014Q2

REPORT INFORMATION
  Report Type: Spontaneous
  Country: IT (occurrence: IT)
  Receive Date: 20140404
  Receipt Date: 20140501
  Transmission Date: 20141212
  Serious: Yes (Hospitalization)
  Sender: FDA-Public Use
  Company Number: IT-PFIZER INC-2014092502

PATIENT
  Sex: Male

DRUGS (1)
  1. ALFUZOSIN HYDROCHLORIDE [Suspect]
     Dosage: UNK

REACTIONS (4)
  - Dizziness [Recovering/Resolving]
  - Nausea [Recovering/Resolving]
  - Syncope [Recovering/Resolving]
  - Vertigo [Recovering/Resolving]
